FAERS Safety Report 6103670-5 (Version None)
Quarter: 2009Q1

REPORT INFORMATION
  Report Type: 
  Country: None (occurrence: None)
  Receive Date: 20090302
  Receipt Date: 20090218
  Transmission Date: 20090719
  Serious: Yes (Hospitalization)
  Sender: FDA-Public Use
  Company Number: 2009-191827-NL

PATIENT
  Age: 26 Year
  Sex: Female
  Weight: 104 kg

DRUGS (1)
  1. IMPLANON [Suspect]
     Indication: CONTRACEPTION
     Dosage: SUBDERMAL
     Route: 059
     Dates: start: 20070801

REACTIONS (4)
  - CHOLELITHIASIS [None]
  - LOSS OF LIBIDO [None]
  - MENSTRUATION IRREGULAR [None]
  - PANCREATITIS CHRONIC [None]
